FAERS Safety Report 9440996 (Version 1)
Quarter: 2013Q3

REPORT INFORMATION
  Report Type: Spontaneous
  Country: US (occurrence: US)
  Receive Date: 20130805
  Receipt Date: 20130805
  Transmission Date: 20140515
  Serious: No
  Sender: FDA-Public Use
  Company Number: US-B.I. PHARMACEUTICALS,INC./RIDGEFIELD-2013-BI-22906BP

PATIENT
  Sex: Female
  Weight: 52 kg

DRUGS (2)
  1. ATROVENT INHALATION SOLUTION [Suspect]
     Indication: ASTHMA
     Route: 055
  2. VENTOLIN [Concomitant]
     Indication: ASTHMA
     Route: 055

REACTIONS (2)
  - Heart rate increased [Recovered/Resolved]
  - Off label use [Not Recovered/Not Resolved]
